FAERS Safety Report 8948004 (Version 1)
Quarter: 2012Q4

REPORT INFORMATION
  Report Type: Spontaneous
  Country: US (occurrence: None)
  Receive Date: 20121203
  Receipt Date: 20121203
  Transmission Date: 20130627
  Serious: Yes (Hospitalization)
  Sender: FDA-Public Use
  Company Number: None

PATIENT
  Age: 43 Year
  Sex: Female
  Weight: 62.5 kg

DRUGS (1)
  1. YASMIN [Suspect]
     Indication: BIRTH CONTROL
     Dosage: per HPI

REACTIONS (3)
  - Convulsion [None]
  - Neurological symptom [None]
  - Unevaluable event [None]
